FAERS Safety Report 8684942 (Version 3)
Quarter: 2012Q4

REPORT INFORMATION
  Report Type: 
  Country: US (occurrence: US)
  Receive Date: 20120726
  Receipt Date: 20121130
  Transmission Date: 20130627
  Serious: No
  Sender: FDA-Public Use
  Company Number: US-009507513-1207USA006638

PATIENT
  Sex: Female

DRUGS (2)
  1. CLARITIN [Suspect]
     Indication: RASH
     Dosage: 10 mg, qpm
     Dates: start: 201206
  2. CLARITIN [Suspect]
     Indication: MEDICAL OBSERVATION
     Dosage: 10 mg, qpm
     Dates: start: 201206

REACTIONS (3)
  - Somnolence [Unknown]
  - Expired drug administered [Unknown]
  - Off label use [Unknown]
